APPROVED DRUG PRODUCT: GLEEVEC
Active Ingredient: IMATINIB MESYLATE
Strength: EQ 100MG BASE **Federal Register determination that product was not discontinued or withdrawn for safety or effectiveness reasons**
Dosage Form/Route: CAPSULE;ORAL
Application: N021335 | Product #002
Applicant: NOVARTIS PHARMACEUTICALS CORP
Approved: May 10, 2001 | RLD: Yes | RS: No | Type: DISCN